FAERS Safety Report 10260365 (Version 2)
Quarter: 2019Q2

REPORT INFORMATION
  Report Type: Report from Study
  Country: US (occurrence: US)
  Receive Date: 20140625
  Receipt Date: 20190408
  Transmission Date: 20190711
  Serious: Yes (Hospitalization)
  Sender: FDA-Public Use
  Company Number: US-SA-2014SA077491

PATIENT
  Age: 54 Year
  Sex: Female

DRUGS (3)
  1. TERIFLUNOMIDE. [Suspect]
     Active Substance: TERIFLUNOMIDE
     Indication: MULTIPLE SCLEROSIS
     Dosage: 14 MG,QD
     Route: 048
     Dates: start: 20130414
  2. TERIFLUNOMIDE. [Suspect]
     Active Substance: TERIFLUNOMIDE
     Dosage: 14 MG,QD
     Route: 048
     Dates: start: 20141126
  3. TERIFLUNOMIDE. [Suspect]
     Active Substance: TERIFLUNOMIDE
     Dosage: 14 MG,QD
     Route: 048
     Dates: start: 20141126, end: 20190401

REACTIONS (20)
  - Hair texture abnormal [Not Recovered/Not Resolved]
  - Alopecia [Recovered/Resolved]
  - Neck pain [Not Recovered/Not Resolved]
  - Dysgraphia [Unknown]
  - Onychoclasis [Unknown]
  - Contusion [Not Recovered/Not Resolved]
  - Reading disorder [Not Recovered/Not Resolved]
  - Vertigo [Unknown]
  - Nervousness [Not Recovered/Not Resolved]
  - Decreased activity [Recovered/Resolved]
  - Impaired driving ability [Unknown]
  - Memory impairment [Not Recovered/Not Resolved]
  - Paraesthesia [Recovered/Resolved]
  - Tenderness [Unknown]
  - Confusional state [Not Recovered/Not Resolved]
  - Dysarthria [Not Recovered/Not Resolved]
  - Paraesthesia [Not Recovered/Not Resolved]
  - Nerve compression [Recovered/Resolved]
  - Skin disorder [Unknown]
  - Dry skin [Unknown]

NARRATIVE: CASE EVENT DATE: 201404
